FAERS Safety Report 4647553-6 (Version None)
Quarter: 2005Q2

REPORT INFORMATION
  Report Type: 
  Country: None (occurrence: None)
  Receive Date: 20050428
  Receipt Date: 20050414
  Transmission Date: 20051028
  Serious: Yes (Death)
  Sender: FDA-Public Use
  Company Number: JP-ROCHE-402329

PATIENT
  Age: 53 Year
  Sex: Male

DRUGS (3)
  1. TAMIFLU [Suspect]
     Indication: INFLUENZA
     Route: 048
     Dates: start: 20050311, end: 20050311
  2. TOMIRON [Concomitant]
     Dosage: FORM: ORAL (NOS).
     Route: 048
  3. VOLTAREN [Concomitant]
     Dosage: FORM: ORAL NOS.
     Route: 048

REACTIONS (1)
  - DISSEMINATED INTRAVASCULAR COAGULATION [None]
